FAERS Safety Report 20378160 (Version 1)
Quarter: 2022Q1

REPORT INFORMATION
  Report Type: Spontaneous
  Country: US (occurrence: US)
  Receive Date: 20220126
  Receipt Date: 20220126
  Transmission Date: 20220424
  Serious: No
  Sender: FDA-Public Use
  Company Number: US-GSKCCFUS-Case-01272151_AE-74336

PATIENT
  Age: 41 Year
  Sex: Male

DRUGS (1)
  1. SOTROVIMAB [Suspect]
     Active Substance: SOTROVIMAB
     Indication: Coronavirus infection
     Dosage: 500 MG
     Route: 042
     Dates: start: 20220119

REACTIONS (1)
  - SARS-CoV-2 test false positive [Unknown]

NARRATIVE: CASE EVENT DATE: 20220119
